FAERS Safety Report 9441004 (Version 1)
Quarter: 2013Q3

REPORT INFORMATION
  Report Type: Spontaneous
  Country: US (occurrence: US)
  Receive Date: 20130805
  Receipt Date: 20130805
  Transmission Date: 20140515
  Serious: Yes (Hospitalization, Other)
  Sender: FDA-Public Use
  Company Number: US-UCBSA-093472

PATIENT
  Age: 35 Year
  Sex: Female

DRUGS (2)
  1. CIMZIA [Suspect]
     Indication: RHEUMATOID ARTHRITIS
     Route: 058
     Dates: start: 2013
  2. METHOTREXATE [Concomitant]
     Dosage: UNKNOWN DOSE

REACTIONS (6)
  - Tympanic membrane perforation [Recovered/Resolved]
  - Diabetes insipidus [Recovering/Resolving]
  - Rheumatoid arthritis [Not Recovered/Not Resolved]
  - Blood pressure increased [Recovering/Resolving]
  - Pneumonia aspiration [Recovering/Resolving]
  - Haematemesis [Unknown]
